FAERS Safety Report 9686948 (Version 1)
Quarter: 2013Q4

REPORT INFORMATION
  Report Type: Spontaneous
  Country: US (occurrence: US)
  Receive Date: 20131113
  Receipt Date: 20131113
  Transmission Date: 20140711
  Serious: Yes (Hospitalization, Other)
  Sender: FDA-Public Use
  Company Number: US-ASTRAZENECA-2013SE82056

PATIENT
  Age: 26504 Day
  Sex: Female
  Weight: 59 kg

DRUGS (15)
  1. BRILINTA [Suspect]
     Indication: STENT PLACEMENT
     Route: 048
     Dates: start: 20130723, end: 20130927
  2. BRILINTA [Suspect]
     Indication: ACUTE CORONARY SYNDROME
     Route: 048
     Dates: start: 20130723, end: 20130927
  3. BRILINTA [Suspect]
     Indication: STENT PLACEMENT
     Route: 048
  4. BRILINTA [Suspect]
     Indication: ACUTE CORONARY SYNDROME
     Route: 048
  5. AMARIL [Concomitant]
     Indication: DIABETES MELLITUS
     Route: 048
  6. ASPIRIN [Concomitant]
     Indication: DRUG THERAPY
     Route: 048
  7. LEXAPRO [Concomitant]
     Indication: NERVOUS SYSTEM DISORDER
     Route: 048
  8. XOPENEX NEBULISER [Concomitant]
     Indication: RESPIRATORY THERAPY
     Dosage: 1.25  IN 3ML Q4H
     Route: 055
  9. SINGULAIR [Concomitant]
     Indication: HYPERSENSITIVITY
     Route: 048
  10. IPRATROPIUM BROMIDE [Concomitant]
     Indication: RESPIRATORY THERAPY
     Route: 055
  11. BLOOD PRESSURE MEDICATION (UNSPECIFIED) [Concomitant]
     Indication: BLOOD PRESSURE ABNORMAL
  12. CHOLESTEROL MEDICATION (UNSPECIFIED) [Concomitant]
     Indication: BLOOD CHOLESTEROL ABNORMAL
  13. WATER PILL (UNSPECIFIED) [Concomitant]
  14. PAIN MEDICATION (UNSPECIFIED) [Concomitant]
     Dates: start: 2006
  15. MUSCLE RELAXERS (UNSPECIFIED) [Concomitant]
     Dates: start: 2006

REACTIONS (17)
  - Myocardial infarction [Unknown]
  - Hypersensitivity [Unknown]
  - Asthenia [Unknown]
  - Anxiety [Unknown]
  - Nervousness [Unknown]
  - Oedema [Unknown]
  - Malaise [Unknown]
  - Weight decreased [Unknown]
  - Coagulopathy [Unknown]
  - Anger [Unknown]
  - Sneezing [Unknown]
  - Mania [Unknown]
  - Aggression [Unknown]
  - Local swelling [Unknown]
  - Epistaxis [Unknown]
  - Contusion [Unknown]
  - Off label use [Recovered/Resolved]
